FAERS Safety Report 7906952-7 (Version None)
Quarter: 2011Q4

REPORT INFORMATION
  Report Type: 
  Country: None (occurrence: None)
  Receive Date: 20111110
  Receipt Date: 20110926
  Transmission Date: 20120403
  Serious: No
  Sender: FDA-Public Use
  Company Number: US-COVIDIEN/TYCO HEALTHCARE/MALLINCKRODT-T201102013

PATIENT
  Age: 52 Year
  Sex: Female

DRUGS (1)
  1. PENNSAID [Suspect]
     Indication: OSTEOARTHRITIS
     Dosage: 10 DROPS QID
     Route: 061
     Dates: start: 20110501, end: 20110901

REACTIONS (2)
  - APPLICATION SITE EXFOLIATION [None]
  - DRY SKIN [None]
